FAERS Safety Report 5336871-4 (Version None)
Quarter: 2007Q2

REPORT INFORMATION
  Report Type: 
  Country: None (occurrence: None)
  Receive Date: 20070529
  Receipt Date: 20070517
  Transmission Date: 20071010
  Serious: Yes (Hospitalization)
  Sender: FDA-Public Use
  Company Number: HQWYE260117MAY07

PATIENT
  Sex: Female
  Weight: 71 kg

DRUGS (3)
  1. RAPAMUNE [Suspect]
     Indication: PROPHYLAXIS AGAINST TRANSPLANT REJECTION
     Route: 048
     Dates: start: 20031208, end: 20061109
  2. FERRUM [Concomitant]
     Indication: IRON DEFICIENCY ANAEMIA
     Route: 048
  3. CELLCEPT [Suspect]
     Indication: PROPHYLAXIS AGAINST TRANSPLANT REJECTION
     Route: 048
     Dates: start: 20030530

REACTIONS (2)
  - CYSTITIS BACTERIAL [None]
  - CYSTITIS HAEMORRHAGIC [None]
